FAERS Safety Report 5007315-7 (Version None)
Quarter: 2006Q2

REPORT INFORMATION
  Report Type: 
  Country: None (occurrence: None)
  Receive Date: 20060519
  Receipt Date: 20060519
  Transmission Date: 20061013
  Serious: Yes (Hospitalization)
  Sender: FDA-Public Use
  Company Number: None

PATIENT
  Age: 73 Year
  Sex: Female
  Weight: 37.195 kg

DRUGS (2)
  1. TOPOTECAN [Suspect]
     Indication: SMALL CELL LUNG CANCER STAGE UNSPECIFIED
     Dosage: 1.4 MG, IV, D1-5
     Route: 042
     Dates: start: 20060501, end: 20060505
  2. ARANESP [Concomitant]

REACTIONS (5)
  - ANAEMIA [None]
  - FEBRILE NEUTROPENIA [None]
  - LEUKOPENIA [None]
  - NO THERAPEUTIC RESPONSE [None]
  - THROMBOCYTOPENIA [None]
